FAERS Safety Report 22111379 (Version 12)
Quarter: 2024Q1

REPORT INFORMATION
  Report Type: Report from Study
  Country: US (occurrence: US)
  Receive Date: 20230317
  Receipt Date: 20240112
  Transmission Date: 20240410
  Serious: Yes (Life-Threatening, Hospitalization, Other)
  Sender: FDA-Public Use
  Company Number: US-HORIZON THERAPEUTICS-HZN-2023-000326

PATIENT

DRUGS (16)
  1. ACTIMMUNE [Suspect]
     Active Substance: INTERFERON GAMMA-1B
     Indication: Neutrophil function disorder
     Dosage: 0.3 ML (60MCG) THREE TIMES A WEEK
     Route: 058
     Dates: start: 20220602
  2. ACTIMMUNE [Suspect]
     Active Substance: INTERFERON GAMMA-1B
     Indication: Chronic granulomatous disease
     Dosage: 0.3 ML (60MCG) THREE TIMES A WEEK
     Route: 058
     Dates: start: 20230303
  3. ACTIMMUNE [Suspect]
     Active Substance: INTERFERON GAMMA-1B
     Dosage: 0.3 ML (60MCG) THREE TIMES A WEEK INJECT UNDER THE SKIN. DISCARD UNUSED PORTION
     Route: 058
  4. INDOMETHACIN [Concomitant]
     Active Substance: INDOMETHACIN
     Dosage: 75 MG SA
  5. DEXAMETHASONE [Concomitant]
     Active Substance: DEXAMETHASONE
     Dosage: 0.5 MG
  6. LEXAPRO [Concomitant]
     Active Substance: ESCITALOPRAM OXALATE
     Dosage: 5 MG
  7. OMEPRAZOLE [Concomitant]
     Active Substance: OMEPRAZOLE
     Dosage: 40 MG DR
  8. AMLODIPINE BESYLATE [Concomitant]
     Active Substance: AMLODIPINE BESYLATE
     Dosage: 10 MG
  9. VITAMIN A [Concomitant]
     Active Substance: VITAMIN A
     Dosage: 10000 IU
  10. BACTRIM DS [Concomitant]
     Active Substance: SULFAMETHOXAZOLE\TRIMETHOPRIM
     Dosage: 800-160 MG
  11. VORICONAZOLE [Concomitant]
     Active Substance: VORICONAZOLE
     Dosage: 200 MG
  12. GABAPENTIN [Concomitant]
     Active Substance: GABAPENTIN
     Dosage: 300 MG
  13. MULTIVITAMINS WITH MINERALS [UMBRELLA TERM] [Concomitant]
  14. ATORVASTATIN [Concomitant]
     Active Substance: ATORVASTATIN
     Dosage: UNK
     Route: 065
  15. VITAMINS [Concomitant]
     Active Substance: VITAMINS
     Dosage: UNK
     Route: 065
  16. CALCIUM [Concomitant]
     Active Substance: CALCIUM

REACTIONS (18)
  - Crohn^s disease [Recovering/Resolving]
  - Norovirus infection [Recovering/Resolving]
  - Gastrointestinal infection [Unknown]
  - Oxygen saturation decreased [Not Recovered/Not Resolved]
  - Colitis [Recovered/Resolved]
  - Asthenia [Not Recovered/Not Resolved]
  - Abdominal pain [Recovering/Resolving]
  - Feeling hot [Unknown]
  - Pain [Unknown]
  - Neck pain [Recovered/Resolved]
  - Drug interaction [Unknown]
  - Decreased appetite [Recovered/Resolved]
  - Nasopharyngitis [Unknown]
  - Myalgia [Unknown]
  - Drug ineffective [Unknown]
  - Headache [Unknown]
  - Pyrexia [Unknown]
  - Lung disorder [Unknown]

NARRATIVE: CASE EVENT DATE: 20230101
